FAERS Safety Report 7888707-5 (Version None)
Quarter: 2011Q4

REPORT INFORMATION
  Report Type: 
  Country: None (occurrence: None)
  Receive Date: 20111103
  Receipt Date: 20111021
  Transmission Date: 20120403
  Serious: Yes (Hospitalization)
  Sender: FDA-Public Use
  Company Number: AU-CELGENEUS-008-20785-11091121

PATIENT
  Sex: Female
  Weight: 51.5 kg

DRUGS (9)
  1. CLODRONAT [Concomitant]
     Dosage: 1600 MILLIGRAM
     Route: 065
  2. VALIUM [Concomitant]
     Route: 065
  3. ZYPREXA [Concomitant]
     Route: 065
  4. ASPIRIN [Concomitant]
     Route: 065
  5. EFFEXOR [Concomitant]
     Route: 065
  6. THYROXIN [Concomitant]
     Route: 065
  7. THALIDOMIDE [Suspect]
     Indication: MULTIPLE MYELOMA
     Dosage: 100 MILLIGRAM
     Route: 048
     Dates: start: 20110516
  8. CYCLOPHOSPHAMIDE [Concomitant]
     Route: 065
  9. COLOXYL SENNA [Concomitant]
     Route: 065

REACTIONS (1)
  - IMPAIRED GASTRIC EMPTYING [None]
